FAERS Safety Report 23794905 (Version 4)
Quarter: 2024Q2

REPORT INFORMATION
  Report Type: Spontaneous
  Country: CZ (occurrence: CZ)
  Receive Date: 20240429
  Receipt Date: 20240528
  Transmission Date: 20240716
  Serious: Yes (Hospitalization, Other)
  Sender: FDA-Public Use
  Company Number: CZ-MYLANLABS-2024M1037841

PATIENT
  Age: 39 Year
  Sex: Male

DRUGS (8)
  1. PREGABALIN [Suspect]
     Active Substance: PREGABALIN
     Indication: Generalised anxiety disorder
     Dosage: 600 MILLIGRAM, BID( PER  DAY IN TWO DIVIDED DOSES)
     Route: 065
     Dates: start: 202301
  2. PREGABALIN [Suspect]
     Active Substance: PREGABALIN
     Dosage: 2400 MILLIGRAM, BID (ONE MORNING DOSE, ALSO BY SNIFFING, ARBITRARILY INCREASED THE DOSE)
     Route: 065
     Dates: start: 202301
  3. PREGABALIN [Suspect]
     Active Substance: PREGABALIN
     Dosage: 300 MILLIGRAM, QD, REDUCE THE SUPRAMAXIMAL DOSES - REDUCTION
     Route: 065
  4. PREGABALIN [Suspect]
     Active Substance: PREGABALIN
     Dosage: 1500 MILLIGRAM, QD, CURRENTLY TAKING 1,500 MG PER DAY
     Route: 065
  5. CLONAZEPAM [Suspect]
     Active Substance: CLONAZEPAM
     Indication: Product used for unknown indication
     Dosage: 6 MILLIGRAM, QD
     Route: 065
  6. TRAMADOL [Suspect]
     Active Substance: TRAMADOL\TRAMADOL HYDROCHLORIDE
     Indication: Product used for unknown indication
     Dosage: UNK
     Route: 065
  7. AMPHETAMINE [Suspect]
     Active Substance: AMPHETAMINE
     Indication: Product used for unknown indication
     Dosage: UNK
     Route: 065
  8. PREGABALIN [Suspect]
     Active Substance: PREGABALIN
     Indication: Generalised anxiety disorder
     Dosage: 2400 MILLIGRAM, QD
     Route: 045

REACTIONS (16)
  - Incorrect route of product administration [Unknown]
  - Drug dependence [Unknown]
  - Drug abuse [Unknown]
  - Substance dependence [Unknown]
  - Intentional product use issue [Unknown]
  - Aggression [Unknown]
  - Behaviour disorder [Unknown]
  - Withdrawal syndrome [Unknown]
  - Psychiatric decompensation [Unknown]
  - Conjunctival hyperaemia [Unknown]
  - Anxiety [Not Recovered/Not Resolved]
  - Tension [Unknown]
  - Hyperhidrosis [Unknown]
  - Insomnia [Unknown]
  - Medication error [Unknown]
  - Intentional overdose [Unknown]
